FAERS Safety Report 5303241-4 (Version None)
Quarter: 2007Q2

REPORT INFORMATION
  Report Type: 
  Country: None (occurrence: None)
  Receive Date: 20070420
  Receipt Date: 20070409
  Transmission Date: 20071010
  Serious: Yes (Hospitalization)
  Sender: FDA-Public Use
  Company Number: HQWYE992109APR07

PATIENT
  Age: 32 Year
  Sex: Male

DRUGS (2)
  1. ENBREL [Suspect]
     Indication: ANKYLOSING SPONDYLITIS
     Route: 058
     Dates: start: 20070201
  2. METHOTREXATE [Concomitant]
     Indication: ANKYLOSING SPONDYLITIS
     Route: 048

REACTIONS (7)
  - CEREBRAL INFARCTION [None]
  - DEMYELINATION [None]
  - DIPLOPIA [None]
  - ENCEPHALITIS [None]
  - HEADACHE [None]
  - PYREXIA [None]
  - VASCULITIS [None]
